FAERS Safety Report 20685083 (Version 1)
Quarter: 2022Q2

REPORT INFORMATION
  Report Type: Other
  Country: BR (occurrence: BR)
  Receive Date: 20220407
  Receipt Date: 20220407
  Transmission Date: 20220720
  Serious: Yes (Other)
  Sender: FDA-Public Use
  Company Number: BR-002147023-NVSC2021BR077555

PATIENT
  Age: 11 Year
  Sex: Male
  Weight: 44 kg

DRUGS (4)
  1. XOLAIR [Suspect]
     Active Substance: OMALIZUMAB
     Indication: Asthma
     Dosage: 4 DF (4 AMPOULES EVERY 15 DAYS)
     Route: 058
     Dates: start: 20210326
  2. BUDESONIDE\FORMOTEROL FUMARATE [Concomitant]
     Active Substance: BUDESONIDE\FORMOTEROL FUMARATE
     Indication: Asthma
     Dosage: 2 DF, BID
     Route: 055
  3. ALBUTEROL [Concomitant]
     Active Substance: ALBUTEROL
     Indication: Asthma
     Dosage: 3 TO 4 INHALATION WHEN NEEDED
     Route: 055
  4. BECLOMETHASONE DIPROPIONATE [Concomitant]
     Active Substance: BECLOMETHASONE DIPROPIONATE
     Indication: Asthma
     Dosage: 4 DF, WHEN NEEDED (2 OR 3 IN 3 HOURS)
     Route: 055
     Dates: start: 2020

REACTIONS (4)
  - Pallor [Recovered/Resolved]
  - Hyperhidrosis [Recovered/Resolved]
  - Vomiting [Recovered/Resolved]
  - Dizziness [Recovered/Resolved]

NARRATIVE: CASE EVENT DATE: 20210326
